FAERS Safety Report 8788763 (Version 1)
Quarter: 2012Q4

REPORT INFORMATION
  Report Type: 
  Country: CA (occurrence: CA)
  Receive Date: 20120917
  Receipt Date: 20120917
  Transmission Date: 20130627
  Serious: Yes (Hospitalization, Other)
  Sender: FDA-Public Use
  Company Number: CA-TEVA-358669USA

PATIENT
  Age: 20 Year
  Sex: Female

DRUGS (1)
  1. PLAN B [Suspect]
     Indication: POST COITAL CONTRACEPTION
     Route: 048
     Dates: start: 2008, end: 2008

REACTIONS (1)
  - Grand mal convulsion [Recovered/Resolved]
